FAERS Safety Report 5463285-9 (Version None)
Quarter: 2007Q3

REPORT INFORMATION
  Report Type: 
  Country: None (occurrence: None)
  Receive Date: 20070920
  Receipt Date: 20070920
  Transmission Date: 20080115
  Serious: Yes (Other)
  Sender: FDA-Public Use
  Company Number: A0682867A

PATIENT
  Age: 60 Year
  Sex: Female

DRUGS (3)
  1. ALLI [Suspect]
     Dosage: 2CAP PER DAY
     Route: 048
  2. COUMADIN [Concomitant]
  3. ANTIHYPERTENSIVE [Concomitant]

REACTIONS (4)
  - DIARRHOEA [None]
  - MALAISE [None]
  - PROCTALGIA [None]
  - RECTAL HAEMORRHAGE [None]
